FAERS Safety Report 10982926 (Version 1)
Quarter: 2015Q2

REPORT INFORMATION
  Report Type: Report from Study
  Country: FR (occurrence: FR)
  Receive Date: 20150403
  Receipt Date: 20150403
  Transmission Date: 20150821
  Serious: Yes (Other)
  Sender: FDA-Public Use
  Company Number: FR-JNJFOC-20150320477

PATIENT
  Sex: Female

DRUGS (1)
  1. EPITOMAX [Suspect]
     Active Substance: TOPIRAMATE
     Indication: SEVERE MYOCLONIC EPILEPSY OF INFANCY
     Route: 048

REACTIONS (8)
  - Epilepsy [Unknown]
  - Abnormal behaviour [Not Recovered/Not Resolved]
  - Loss of consciousness [Unknown]
  - Balance disorder [Unknown]
  - Fall [Unknown]
  - Tremor [Unknown]
  - Body temperature decreased [Unknown]
  - Hypokinesia [Unknown]
